FAERS Safety Report 16437359 (Version 1)
Quarter: 2019Q2

REPORT INFORMATION
  Report Type: Spontaneous
  Country: US (occurrence: US)
  Receive Date: 20190615
  Receipt Date: 20190615
  Transmission Date: 20190711
  Serious: Yes (Other)
  Sender: FDA-Public Use
  Company Number: US-UNITED THERAPEUTICS-UNT-2019-010213

PATIENT
  Sex: Male
  Weight: 129.25 kg

DRUGS (2)
  1. WARFARIN [Suspect]
     Active Substance: WARFARIN
     Indication: PRODUCT USED FOR UNKNOWN INDICATION
     Dosage: UNK
     Route: 065
  2. REMODULIN [Suspect]
     Active Substance: TREPROSTINIL
     Indication: PULMONARY ARTERIAL HYPERTENSION
     Dosage: 0.079 ?G/KG, CONTINUING
     Route: 058
     Dates: start: 20060418

REACTIONS (6)
  - Infusion site erythema [Unknown]
  - Infusion site pain [Unknown]
  - Cardiac valve disease [Unknown]
  - Bladder cancer [Unknown]
  - Haemorrhage [Unknown]
  - Infusion site swelling [Unknown]
